FAERS Safety Report 8221517-8 (Version None)
Quarter: 2012Q1

REPORT INFORMATION
  Report Type: 
  Country: None (occurrence: None)
  Receive Date: 20120316
  Receipt Date: 20120229
  Transmission Date: 20120608
  Serious: Yes (Hospitalization)
  Sender: FDA-Public Use
  Company Number: JPI-P-020067

PATIENT
  Age: 32 Year
  Sex: Male

DRUGS (10)
  1. NEVIRAPINE [Concomitant]
  2. VALACYCLOVIR [Concomitant]
  3. L-METHYLFOLATE/METHYLCOBALAMIN/N-ACETYLCYSTEINE [Concomitant]
  4. ILOPERIDONE [Concomitant]
  5. RALTEGRAVIR [Concomitant]
  6. EMTRICITABINE AND TENOFOVIR DISOPROXIL FUMARATE [Concomitant]
  7. RAMELTEON [Concomitant]
  8. XYREM [Suspect]
     Indication: NARCOLEPSY
     Dosage: 9 GM (4.5 GM,2 IN 1 D),ORAL
     Route: 048
     Dates: start: 20111019
  9. BUPROPION HCL [Concomitant]
  10. KLONOPIN [Concomitant]

REACTIONS (3)
  - GASTROINTESTINAL INFECTION [None]
  - LARGE INTESTINAL ULCER [None]
  - CYTOMEGALOVIRUS INFECTION [None]
